FAERS Safety Report 5989915-0 (Version None)
Quarter: 2008Q4

REPORT INFORMATION
  Report Type: 
  Country: None (occurrence: None)
  Receive Date: 20081210
  Receipt Date: 20081125
  Transmission Date: 20090506
  Serious: Yes (Hospitalization)
  Sender: FDA-Public Use
  Company Number: 100#08#2008-05935

PATIENT
  Age: 33 Year
  Sex: Female

DRUGS (1)
  1. METFORMIN HCL [Suspect]
     Dosage: 500 MG TWICE DAILY, ORAL
     Route: 048

REACTIONS (13)
  - ALCOHOL USE [None]
  - DRUG ABUSE [None]
  - DRUG EXPOSURE DURING PREGNANCY [None]
  - DYSPNOEA [None]
  - HEART RATE INCREASED [None]
  - HYPOGLYCAEMIA [None]
  - INTRA-UTERINE DEATH [None]
  - LACTIC ACIDOSIS [None]
  - METABOLIC ACIDOSIS [None]
  - NAUSEA [None]
  - PALLOR [None]
  - RESPIRATORY RATE INCREASED [None]
  - TOXICOLOGIC TEST ABNORMAL [None]
